FAERS Safety Report 6206938-7 (Version None)
Quarter: 2009Q2

REPORT INFORMATION
  Report Type: 
  Country: None (occurrence: None)
  Receive Date: 20090528
  Receipt Date: 20090518
  Transmission Date: 20091009
  Serious: Yes (Death, Hospitalization)
  Sender: FDA-Public Use
  Company Number: B0050655A

PATIENT
  Sex: Male

DRUGS (14)
  1. ACYCLOVIR [Suspect]
     Indication: HERPES ZOSTER
     Dosage: 800MG FOUR TIMES PER DAY
     Route: 048
     Dates: start: 19971018, end: 19971018
  2. MECOBALAMIN [Concomitant]
     Indication: HERPES ZOSTER
     Route: 048
  3. ALMINOPROFEN [Concomitant]
     Indication: HERPES ZOSTER
     Route: 048
  4. AZOSEMIDE [Concomitant]
     Dosage: 60MG PER DAY
     Route: 048
  5. ALFACALCIDOL [Concomitant]
     Dosage: .5MCG PER DAY
     Route: 048
  6. TEPRENONE [Concomitant]
     Dosage: 100MG PER DAY
     Route: 048
  7. CAPTOPRIL [Concomitant]
     Dosage: 25MG PER DAY
     Route: 048
  8. DOXAZOSIN MESILATE [Concomitant]
     Dosage: 2MG PER DAY
     Route: 048
  9. METOPROLOL TARTRATE [Concomitant]
     Dosage: 2TAB PER DAY
     Route: 048
  10. PRECIPITATED CALCIUM CARBONATE [Concomitant]
     Dosage: 3G PER DAY
     Route: 048
  11. NIFEDIPINE [Concomitant]
  12. FAMOTIDINE [Concomitant]
     Dosage: 20MG PER DAY
     Route: 048
  13. SENNOSIDE [Concomitant]
     Dosage: 24MG PER DAY
     Route: 048
  14. ALLOPURINOL [Concomitant]
     Dosage: 100MG PER DAY
     Route: 048

REACTIONS (13)
  - ABDOMINAL ABSCESS [None]
  - ALTERED STATE OF CONSCIOUSNESS [None]
  - CARDIAC ARREST [None]
  - CEREBRAL INFARCTION [None]
  - DEATH [None]
  - DIPLOPIA [None]
  - DYSPNOEA [None]
  - HYPERTENSION [None]
  - INFLAMMATION [None]
  - LOGORRHOEA [None]
  - PNEUMONIA [None]
  - RESPIRATORY DISORDER [None]
  - RESTLESSNESS [None]
